FAERS Safety Report 21604722 (Version 2)
Quarter: 2023Q2

REPORT INFORMATION
  Report Type: Report from Study
  Country: US (occurrence: US)
  Receive Date: 20221116
  Receipt Date: 20230421
  Transmission Date: 20230722
  Serious: No
  Sender: FDA-Public Use
  Company Number: US-ABBVIE-4156717

PATIENT
  Age: 31 Year
  Sex: Female

DRUGS (2)
  1. HUMIRA [Suspect]
     Active Substance: ADALIMUMAB
     Indication: Crohn^s disease
     Dosage: CITRATE FREE
     Route: 058
     Dates: start: 20220225, end: 2022
  2. HUMIRA [Suspect]
     Active Substance: ADALIMUMAB
     Dosage: CITRATE FREE
     Route: 058
     Dates: start: 20220225

REACTIONS (8)
  - Blood iron decreased [Not Recovered/Not Resolved]
  - Adverse drug reaction [Recovering/Resolving]
  - Swelling face [Recovering/Resolving]
  - Blood pressure abnormal [Recovering/Resolving]
  - Back pain [Recovering/Resolving]
  - Urticaria [Recovering/Resolving]
  - Gait disturbance [Recovering/Resolving]
  - Muscle spasms [Unknown]

NARRATIVE: CASE EVENT DATE: 20220915
